FAERS Safety Report 16662143 (Version 1)
Quarter: 2019Q3

REPORT INFORMATION
  Report Type: Spontaneous
  Country: US (occurrence: US)
  Receive Date: 20190802
  Receipt Date: 20190802
  Transmission Date: 20191004
  Serious: Yes (Hospitalization)
  Sender: FDA-Public Use
  Company Number: None

PATIENT
  Age: 6 Week
  Sex: Female
  Weight: 110.25 kg

DRUGS (10)
  1. FARXIGA [Suspect]
     Active Substance: DAPAGLIFLOZIN PROPANEDIOL
     Indication: DIABETES MELLITUS
     Dates: start: 20170926, end: 20190314
  2. CURCURMIN [Concomitant]
  3. ENZYMES [Concomitant]
  4. BERBERINE [Concomitant]
     Active Substance: BERBERINE
  5. FISH OIL [Concomitant]
     Active Substance: FISH OIL
  6. QUERCITIN [Concomitant]
  7. PROBIOTICS NOS\VITAMINS [Concomitant]
     Active Substance: PROBIOTICS NOS\VITAMINS
  8. ASHWAGANDHA [Concomitant]
     Active Substance: HERBALS
  9. MAGNESIUM [Concomitant]
     Active Substance: MAGNESIUM
  10. VITAMIN D3 [Concomitant]
     Active Substance: CHOLECALCIFEROL

REACTIONS (1)
  - Fournier^s gangrene [None]

NARRATIVE: CASE EVENT DATE: 20190309
